FAERS Safety Report 9538623 (Version 2)
Quarter: 2014Q1

REPORT INFORMATION
  Report Type: Spontaneous
  Country: US (occurrence: None)
  Receive Date: 20130917
  Receipt Date: 20140116
  Transmission Date: 20141002
  Serious: Yes (Other)
  Sender: FDA-Public Use
  Company Number: 2013-US-000131

PATIENT
  Age: 25 Year
  Sex: Female
  Weight: 72.6 kg

DRUGS (21)
  1. XYREM [Suspect]
     Indication: NARCOLEPSY
     Route: 048
     Dates: start: 20101006
  2. STRATTERA [Suspect]
     Route: 048
     Dates: end: 20130102
  3. BUSPAR [Concomitant]
  4. CALCIUM CARBONATE AND VITAMIN D (CALCIUM CARBONATE [Concomitant]
  5. CHOLECALCIFEROL (COLECALCIFEROL) TABLET [Concomitant]
  6. CLEOCIN T (CLINDAMYCIN PHOSPHATE) GEL 1% [Concomitant]
  7. VALIUM (DIAZEPAM) TABLET [Concomitant]
  8. MOTRIN (IBUPROFEN) TABLET [Concomitant]
  9. LEVOTHYROXINE SODIUM (LEVOTHYROXINE SODIUM) TABLET [Concomitant]
  10. LISINOPRIL (LISINOPRIL) [Concomitant]
  11. MAG-OX (MAGNESIUM OXIDE) TABLET [Concomitant]
  12. MULTIVITAMINS (ASCORBIC ACID, ERGOCALCIFEROL, FOLIC ACID, NICOTINAMIDE, PANTHENOL, RETINOL, RIBOFLAVIN, THIAMINE HYDROCHLORIDE) TABLET [Concomitant]
  13. OVCON-35 (ETHINYLESTRADIOL, NORETHISTERONE) TABLET [Concomitant]
  14. OMEGA 3 FISH OIL (FISH OIL) CAPSULE, 1000 MG [Concomitant]
  15. ROXICODONE (OXYCODONE HYDROCHLORIDE) ORAL SOLUTION [Concomitant]
  16. MIRALAX [Concomitant]
  17. VALTREX (VALACICLOVIR HYDROCHLORIDE) [Concomitant]
  18. VOLTAREN-XR (DICLOFENAC SODIUM) [Concomitant]
  19. LUSTRA (HYDROQUINONE) CREAM, 4% [Concomitant]
  20. LIDOCAINE HCL (LIDOCAINE HYDROCHLORIDE) 5% [Concomitant]
  21. ZANTAC (RANITIDINE HYDROCHLORIDE) [Concomitant]

REACTIONS (8)
  - Osteonecrosis [None]
  - Cardiomyopathy [None]
  - Osteopenia [None]
  - Constipation [None]
  - Tonsillar hypertrophy [None]
  - Tachycardia [None]
  - Pain [None]
  - Hallucination [None]
